FAERS Safety Report 7827397-4 (Version None)
Quarter: 2011Q4

REPORT INFORMATION
  Report Type: 
  Country: None (occurrence: None)
  Receive Date: 20111020
  Receipt Date: 20111012
  Transmission Date: 20120403
  Serious: Yes (Death)
  Sender: FDA-Public Use
  Company Number: TR-CUBIST-2011S1000676

PATIENT
  Age: 69 Year
  Sex: Male

DRUGS (4)
  1. LINEZOLID [Concomitant]
     Indication: PRODUCT USED FOR UNKNOWN INDICATION
  2. VANCOMYCIN HCL [Concomitant]
     Indication: PRODUCT USED FOR UNKNOWN INDICATION
     Route: 065
  3. CEFTIZOXIME [Concomitant]
     Indication: PRODUCT USED FOR UNKNOWN INDICATION
  4. CUBICIN [Suspect]
     Indication: MENINGITIS STAPHYLOCOCCAL
     Route: 065

REACTIONS (1)
  - DEATH [None]
